FAERS Safety Report 10892052 (Version 3)
Quarter: 2015Q2

REPORT INFORMATION
  Report Type: Spontaneous
  Country: US (occurrence: US)
  Receive Date: 20150306
  Receipt Date: 20150403
  Transmission Date: 20150821
  Serious: Yes (Hospitalization, Other)
  Sender: FDA-Public Use
  Company Number: US-SA-2014SA114108

PATIENT
  Age: 45 Year
  Sex: Female
  Weight: 104.3 kg

DRUGS (35)
  1. FABRAZYME [Suspect]
     Active Substance: AGALSIDASE BETA
     Indication: FABRY^S DISEASE
     Dosage: EVERY 2-3 WEEKS
     Route: 042
     Dates: start: 20110210
  2. ACETAMINOPHEN. [Concomitant]
     Active Substance: ACETAMINOPHEN
  3. PANTHENOL/RETINOL/THIAMINE HYDROCHLORIDE/ASCORBIC ACID/ERGOCALCIFEROL/FOLIC ACID/RIBOFLAVIN/NICOTINA [Concomitant]
  4. XANAX [Concomitant]
     Active Substance: ALPRAZOLAM
  5. MORPHINE [Concomitant]
     Active Substance: MORPHINE
  6. LEXAPRO [Concomitant]
     Active Substance: ESCITALOPRAM OXALATE
  7. FABRAZYME [Suspect]
     Active Substance: AGALSIDASE BETA
     Indication: FABRY^S DISEASE
     Dosage: EVERY 2-3 WEEKS
     Route: 042
     Dates: start: 20110210
  8. ZITHROMAX [Concomitant]
     Active Substance: AZITHROMYCIN DIHYDRATE
  9. POTASSIUM [Concomitant]
     Active Substance: POTASSIUM
  10. EPINEPHRINE. [Concomitant]
     Active Substance: EPINEPHRINE
  11. KEFLEX [Concomitant]
     Active Substance: CEPHALEXIN
  12. DIPHENHYDRAMINE [Concomitant]
     Active Substance: DIPHENHYDRAMINE
  13. NORMAL SALINE [Concomitant]
     Active Substance: SODIUM CHLORIDE
  14. SOMA [Concomitant]
     Active Substance: CARISOPRODOL
  15. DEXILANT [Concomitant]
     Active Substance: DEXLANSOPRAZOLE
  16. MUCINEX [Concomitant]
     Active Substance: GUAIFENESIN
  17. CIPRO [Concomitant]
     Active Substance: CIPROFLOXACIN HYDROCHLORIDE
  18. SUDAFED [Concomitant]
     Active Substance: PSEUDOEPHEDRINE HYDROCHLORIDE
  19. PRAVASTATIN [Concomitant]
     Active Substance: PRAVASTATIN\PRAVASTATIN SODIUM
  20. TOPAMAX [Concomitant]
     Active Substance: TOPIRAMATE
  21. FABRAZYME [Suspect]
     Active Substance: AGALSIDASE BETA
     Indication: FABRY^S DISEASE
     Dosage: EVERY 2-3 WEEKS
     Route: 042
     Dates: start: 20110210
  22. WATER. [Concomitant]
     Active Substance: WATER
  23. VITAMIN D [Concomitant]
     Active Substance: CHOLECALCIFEROL
     Dosage: 400 UNIT SOFT GEL
  24. TRILEPTAL [Concomitant]
     Active Substance: OXCARBAZEPINE
  25. METOPROLOL [Concomitant]
     Active Substance: METOPROLOL
  26. MOBIC [Concomitant]
     Active Substance: MELOXICAM
  27. HEPARIN [Concomitant]
     Active Substance: HEPARIN SODIUM
  28. LIDOCAINE. [Concomitant]
     Active Substance: LIDOCAINE
  29. DEXTROMETHORPHAN HYDROBROMIDE/ETHANOL/GUAIFENESIN [Concomitant]
  30. AMOXICILLIN. [Concomitant]
     Active Substance: AMOXICILLIN
  31. ROXICODONE [Concomitant]
     Active Substance: OXYCODONE HYDROCHLORIDE
  32. CELEBREX [Concomitant]
     Active Substance: CELECOXIB
  33. ASPIRIN. [Concomitant]
     Active Substance: ASPIRIN
  34. CLINDAMYCIN [Concomitant]
     Active Substance: CLINDAMYCIN\CLINDAMYCIN PHOSPHATE
  35. FABRAZYME [Suspect]
     Active Substance: AGALSIDASE BETA
     Indication: FABRY^S DISEASE
     Dosage: EVERY 2-3 WEEKS
     Route: 042
     Dates: start: 20110210

REACTIONS (3)
  - Upper respiratory tract infection [Not Recovered/Not Resolved]
  - Sinusitis [Unknown]
  - Wound infection [Unknown]

NARRATIVE: CASE EVENT DATE: 20140816
